FAERS Safety Report 10561194 (Version 1)
Quarter: 2014Q4

REPORT INFORMATION
  Report Type: Spontaneous
  Country: US (occurrence: US)
  Receive Date: 20141103
  Receipt Date: 20141103
  Transmission Date: 20150529
  Serious: Yes (Hospitalization, Disabling, Other)
  Sender: FDA-Public Use
  Company Number: US-MERCK-1410USA015398

PATIENT
  Sex: Male
  Weight: 108.84 kg

DRUGS (3)
  1. JANUVIA [Suspect]
     Active Substance: SITAGLIPTIN PHOSPHATE
     Indication: TYPE 2 DIABETES MELLITUS
     Dosage: 100 MG, DAILY
     Route: 048
     Dates: start: 20080318, end: 20121112
  2. EFFEXOR [Concomitant]
     Active Substance: VENLAFAXINE HYDROCHLORIDE
     Indication: MOOD ALTERED
     Dosage: 37.5-225 MG, DAILY
     Route: 048
     Dates: start: 20080319
  3. JANUVIA [Suspect]
     Active Substance: SITAGLIPTIN PHOSPHATE
     Indication: DIABETES MELLITUS INADEQUATE CONTROL

REACTIONS (33)
  - Procedural haemorrhage [Unknown]
  - Intervertebral disc degeneration [Not Recovered/Not Resolved]
  - Dental caries [Unknown]
  - Enteritis [Unknown]
  - Pancreatitis chronic [Unknown]
  - Pancreatic neuroendocrine tumour metastatic [Unknown]
  - Bile duct stone [Unknown]
  - Atelectasis [Unknown]
  - Metastases to lymph nodes [Unknown]
  - Renal stone removal [Unknown]
  - Atrioventricular block first degree [Unknown]
  - Gastritis [Unknown]
  - Anxiety [Unknown]
  - Chronic gastritis [Unknown]
  - Depression [Unknown]
  - Prostatic specific antigen increased [Unknown]
  - Aortic arteriosclerosis [Unknown]
  - Localised intraabdominal fluid collection [Unknown]
  - Arteriosclerosis coronary artery [Unknown]
  - Atelectasis [Unknown]
  - Hypothyroidism [Unknown]
  - Gastrooesophageal reflux disease [Unknown]
  - Diabetes mellitus [Unknown]
  - Transaminases increased [Unknown]
  - Pancreaticoduodenectomy [Unknown]
  - Pancreatitis acute [Unknown]
  - Adjustment disorder [Unknown]
  - Small intestine carcinoma [Unknown]
  - Confusion postoperative [Unknown]
  - Agitation postoperative [Unknown]
  - Fat necrosis [Unknown]
  - Drug ineffective [Unknown]
  - Blood creatinine increased [Recovered/Resolved]

NARRATIVE: CASE EVENT DATE: 20080318
